FAERS Safety Report 4397364-4 (Version None)
Quarter: 2004Q3

REPORT INFORMATION
  Report Type: 
  Country: None (occurrence: None)
  Receive Date: 20040714
  Receipt Date: 20040628
  Transmission Date: 20050211
  Serious: Yes (Death, Hospitalization)
  Sender: FDA-Public Use
  Company Number: NO-BRISTOL-MYERS SQUIBB COMPANY-12631198

PATIENT
  Age: 82 Year
  Sex: Female

DRUGS (10)
  1. SINEMET CR [Suspect]
  2. TRIMETHOPRIM + SULFAMETHOXAZOLE [Suspect]
     Indication: URINE ANALYSIS
     Dates: start: 20030228, end: 20030307
  3. TRAMADOL [Concomitant]
  4. NEXIUM [Concomitant]
  5. KAJOS [Concomitant]
  6. SOBRIL [Concomitant]
  7. VITAMIN B COMPLEX CAP [Concomitant]
  8. FOLINIC ACID [Concomitant]
  9. LACTULOSE [Concomitant]
  10. PREDNISOLONE [Concomitant]

REACTIONS (1)
  - THROMBOCYTOPENIA [None]
